FAERS Safety Report 5484386-5 (Version None)
Quarter: 2007Q4

REPORT INFORMATION
  Report Type: 
  Country: None (occurrence: None)
  Receive Date: 20071012
  Receipt Date: 20071002
  Transmission Date: 20080405
  Serious: Yes (Other)
  Sender: FDA-Public Use
  Company Number: TR-ABBOTT-07P-161-0419198-00

PATIENT
  Age: 10 Year
  Sex: Female

DRUGS (3)
  1. VALPROIC ACID [Suspect]
     Indication: DRUG USE FOR UNKNOWN INDICATION
     Dosage: NOT REPORTED
  2. METHYLPHENIDATE HCL [Interacting]
     Indication: DRUG USE FOR UNKNOWN INDICATION
     Dosage: NOT REPORTED
  3. IMIPRAMINE [Interacting]
     Indication: DRUG USE FOR UNKNOWN INDICATION
     Dosage: NOT REPORTED

REACTIONS (2)
  - DRUG INTERACTION [None]
  - OCULOGYRIC CRISIS [None]
